FAERS Safety Report 7049500-9 (Version None)
Quarter: 2010Q4

REPORT INFORMATION
  Report Type: 
  Country: None (occurrence: None)
  Receive Date: 20101018
  Receipt Date: 20101008
  Transmission Date: 20110411
  Serious: Yes (Disabling)
  Sender: FDA-Public Use
  Company Number: CN-ASTRAZENECA-2009SE22968

PATIENT
  Sex: Female

DRUGS (3)
  1. RHINOCORT [Suspect]
     Indication: NASAL POLYPS
     Route: 045
     Dates: start: 20090201, end: 20090408
  2. CLARITHROMYCIN [Concomitant]
     Indication: INFECTION PROPHYLAXIS
     Route: 048
  3. SINUPRET [Concomitant]
     Route: 048

REACTIONS (2)
  - NASAL SEPTUM PERFORATION [None]
  - NASAL SEPTUM ULCERATION [None]
